FAERS Safety Report 7108914-9 (Version None)
Quarter: 2010Q4

REPORT INFORMATION
  Report Type: 
  Country: None (occurrence: None)
  Receive Date: 20101112
  Receipt Date: 20101029
  Transmission Date: 20110411
  Serious: Yes (Hospitalization, Other)
  Sender: FDA-Public Use
  Company Number: BR-001321

PATIENT
  Sex: Male

DRUGS (1)
  1. NAGLAZYME [Suspect]
     Indication: MUCOPOLYSACCHARIDOSIS VI
     Dosage: (INTRAVENOUS DRIP)
     Route: 041
     Dates: start: 20080716

REACTIONS (2)
  - DISEASE RECURRENCE [None]
  - INGUINAL HERNIA [None]
